FAERS Safety Report 9130785 (Version 3)
Quarter: 2014Q3

REPORT INFORMATION
  Report Type: Spontaneous
  Country: US (occurrence: US)
  Receive Date: 20130301
  Receipt Date: 20140808
  Transmission Date: 20150326
  Serious: Yes (Hospitalization)
  Sender: FDA-Public Use
  Company Number: US-BAYER-2013-022006

PATIENT
  Age: 35 Year
  Sex: Female
  Weight: 88 kg

DRUGS (9)
  1. MIRENA [Suspect]
     Active Substance: LEVONORGESTREL
     Indication: CONTRACEPTION
     Dosage: 20 MCG/24HR, CONT
     Route: 015
     Dates: start: 20080625, end: 20110328
  2. DIFLUCAN [Concomitant]
     Active Substance: FLUCONAZOLE
  3. GLUCOPHAGE [Concomitant]
     Active Substance: METFORMIN HYDROCHLORIDE
  4. FLAGYL [Concomitant]
     Active Substance: METRONIDAZOLE\METRONIDAZOLE HYDROCHLORIDE
  5. LANTUS [Concomitant]
     Active Substance: INSULIN GLARGINE
  6. GLIPIZIDE. [Concomitant]
     Active Substance: GLIPIZIDE
  7. DIABETA [Concomitant]
     Active Substance: GLYBURIDE
  8. METFORMIN [Concomitant]
     Active Substance: METFORMIN HYDROCHLORIDE
     Route: 048
  9. ASPIRIN. [Concomitant]
     Active Substance: ASPIRIN

REACTIONS (9)
  - Fear [None]
  - Uterine perforation [None]
  - Menorrhagia [None]
  - Abdominal pain [None]
  - Anxiety [None]
  - Pain [None]
  - Emotional distress [None]
  - Injury [None]
  - Psychological trauma [None]

NARRATIVE: CASE EVENT DATE: 201103
